FAERS Safety Report 16761474 (Version 2)
Quarter: 2024Q2

REPORT INFORMATION
  Report Type: Report from Study
  Country: IT (occurrence: IT)
  Receive Date: 20190830
  Receipt Date: 20240621
  Transmission Date: 20240715
  Serious: Yes (Other)
  Sender: FDA-Public Use
  Company Number: IT-JNJFOC-20190726009

PATIENT
  Age: 17 Year
  Sex: Female
  Weight: 30.7 kg

DRUGS (17)
  1. MORPHINE SULFATE [Suspect]
     Active Substance: MORPHINE SULFATE
     Indication: Analgesic therapy
     Dosage: 2 MILLIGRAM (2 MILLIGRAM PER MILLILITRE)
     Route: 042
  2. MORPHINE SULFATE [Suspect]
     Active Substance: MORPHINE SULFATE
     Indication: Procedural pain
     Dosage: UNK
     Route: 065
  3. MORPHINE SULFATE [Suspect]
     Active Substance: MORPHINE SULFATE
     Indication: Product used for unknown indication
     Dosage: UNK
     Route: 065
  4. MORPHINE SULFATE [Suspect]
     Active Substance: MORPHINE SULFATE
     Dosage: UNK
     Route: 065
  5. KETAMINE [Suspect]
     Active Substance: KETAMINE
     Indication: Analgesic therapy
     Dosage: 1 MILLIGRAM/KILOGRAM (01 MILLIGRAM/KILOGRAM)
     Route: 042
  6. KETAMINE [Suspect]
     Active Substance: KETAMINE
     Indication: Procedural pain
     Dosage: 2 MILLIGRAM (2 MILLIGRAM PER MILLILITRE)
     Route: 065
  7. KETAMINE [Suspect]
     Active Substance: KETAMINE
     Indication: Product used for unknown indication
     Dosage: UNK, (AVERAGE DOSE 0.1 MG/KG)
     Route: 065
  8. KETAMINE [Suspect]
     Active Substance: KETAMINE
     Dosage: UNK
     Route: 065
  9. KETAMINE [Suspect]
     Active Substance: KETAMINE
     Dosage: UNK
     Route: 041
  10. SUFENTA [Suspect]
     Active Substance: SUFENTANIL CITRATE
     Indication: Analgesic therapy
     Dosage: 0.2 MCG/KG, UNK
     Route: 065
  11. BACLOFEN [Suspect]
     Active Substance: BACLOFEN
     Indication: Analgesic therapy
     Dosage: UNK
     Route: 065
  12. BACLOFEN [Suspect]
     Active Substance: BACLOFEN
     Indication: Scoliosis
     Dosage: UNK
     Route: 038
  13. BACLOFEN [Suspect]
     Active Substance: BACLOFEN
     Indication: Product used for unknown indication
     Dosage: UNK
     Route: 065
  14. SUFENTANIL [Suspect]
     Active Substance: SUFENTANIL
     Indication: Analgesic therapy
     Dosage: 2 MCG/KG (0.1-0.2 ?G/KG)
     Route: 065
  15. SUFENTANIL [Suspect]
     Active Substance: SUFENTANIL
     Indication: Procedural pain
     Dosage: UNK
     Route: 065
  16. SUFENTANIL [Suspect]
     Active Substance: SUFENTANIL
     Indication: Product used for unknown indication
     Dosage: UNK
     Route: 041
  17. SUFENTANIL [Suspect]
     Active Substance: SUFENTANIL
     Dosage: UNK
     Route: 065

REACTIONS (5)
  - Sedation complication [Unknown]
  - Product use in unapproved indication [Unknown]
  - Drug interaction [Unknown]
  - Respiratory depression [Unknown]
  - Sedation [Unknown]
